FAERS Safety Report 14575556 (Version 1)
Quarter: 2018Q1

REPORT INFORMATION
  Report Type: Spontaneous
  Country: US (occurrence: US)
  Receive Date: 20180227
  Receipt Date: 20180227
  Transmission Date: 20180509
  Serious: No
  Sender: FDA-Public Use
  Company Number: US-009507513-1802USA012883

PATIENT

DRUGS (4)
  1. LOTRIMIN ULTRA JOCK ITCH [Suspect]
     Active Substance: BUTENAFINE HYDROCHLORIDE
     Indication: THERAPEUTIC SKIN CARE TOPICAL
     Route: 061
  2. LOTRIMIN ULTRA JOCK ITCH [Suspect]
     Active Substance: BUTENAFINE HYDROCHLORIDE
     Indication: PSORIASIS
  3. LOTRIMIN ULTRA JOCK ITCH [Suspect]
     Active Substance: BUTENAFINE HYDROCHLORIDE
     Indication: ECZEMA
  4. CLOTRIMAZOLE (+) BETAMETHASONE DIPROPIONATE [Suspect]
     Active Substance: BETAMETHASONE DIPROPIONATE\CLOTRIMAZOLE
     Indication: THERAPEUTIC SKIN CARE TOPICAL
     Route: 065

REACTIONS (4)
  - Circumstance or information capable of leading to device use error [Unknown]
  - Product administered at inappropriate site [Unknown]
  - Product use in unapproved indication [Unknown]
  - Off label use [Unknown]
